FAERS Safety Report 7673976-7 (Version None)
Quarter: 2011Q3

REPORT INFORMATION
  Report Type: 
  Country: None (occurrence: None)
  Receive Date: 20110810
  Receipt Date: 20110805
  Transmission Date: 20111222
  Serious: Yes (Death)
  Sender: FDA-Public Use
  Company Number: FR-BRISTOL-MYERS SQUIBB COMPANY-15950090

PATIENT
  Age: 82 Year
  Sex: Female

DRUGS (5)
  1. MEDIATOR [Suspect]
     Indication: DIABETES MELLITUS
     Route: 048
     Dates: start: 20000930, end: 20050526
  2. SOTALOL HCL [Suspect]
     Indication: ARRHYTHMIA
     Route: 048
     Dates: start: 20091125, end: 20101027
  3. ALLOPURINOL [Suspect]
     Indication: GOUT
     Dates: end: 20101027
  4. VASTAREL [Suspect]
     Route: 048
     Dates: start: 19980212, end: 20101027
  5. METFORMIN HCL [Suspect]
     Indication: TYPE 2 DIABETES MELLITUS
     Route: 048
     Dates: start: 20050526, end: 20101027

REACTIONS (1)
  - SUDDEN DEATH [None]
